FAERS Safety Report 8336529-3 (Version None)
Quarter: 2012Q2

REPORT INFORMATION
  Report Type: 
  Country: None (occurrence: None)
  Receive Date: 20120504
  Receipt Date: 20120428
  Transmission Date: 20120825
  Serious: Yes (Other)
  Sender: FDA-Public Use
  Company Number: US-BAYER-2011-085046

PATIENT
  Age: 18 Year
  Sex: Female

DRUGS (7)
  1. SKELAXIN [Concomitant]
  2. PHENAZOPYRIDINE HCL TAB [Concomitant]
  3. BELLADONNA EXTRACT W/PHENOBARBITONE [Concomitant]
  4. HYDROCODONE BITARTRATE AND ACETAMINOPHEN [Concomitant]
  5. YAZ [Suspect]
     Dosage: UNK
     Dates: start: 20080601, end: 20080901
  6. SULFAMETHOXAZOLE [Concomitant]
  7. AMOXICILLIN [Concomitant]

REACTIONS (4)
  - GALLBLADDER INJURY [None]
  - PAIN [None]
  - CHOLECYSTITIS CHRONIC [None]
  - INJURY [None]
